FAERS Safety Report 16856917 (Version 1)
Quarter: 2019Q3

REPORT INFORMATION
  Report Type: Spontaneous
  Country: DE (occurrence: DE)
  Receive Date: 20190926
  Receipt Date: 20190926
  Transmission Date: 20191005
  Serious: Yes (Other)
  Sender: FDA-Public Use
  Company Number: DE-MYLANLABS-2019M1089140

PATIENT

DRUGS (1)
  1. CARBAMAZEPINE. [Suspect]
     Active Substance: CARBAMAZEPINE
     Indication: EPILEPSY
     Dosage: UNK

REACTIONS (3)
  - Stevens-Johnson syndrome [Unknown]
  - Overlap syndrome [Unknown]
  - Toxic epidermal necrolysis [Unknown]
